FAERS Safety Report 5168170-8 (Version None)
Quarter: 2006Q4

REPORT INFORMATION
  Report Type: 
  Country: None (occurrence: None)
  Receive Date: 20061208
  Receipt Date: 20061205
  Transmission Date: 20070319
  Serious: Yes (Disabling)
  Sender: FDA-Public Use
  Company Number: 2006UW27115

PATIENT
  Age: 51 Year
  Sex: Male
  Weight: 62 kg

DRUGS (4)
  1. ATACAND [Suspect]
     Indication: HYPERTENSION
     Route: 048
     Dates: start: 20061105, end: 20061120
  2. TENORETIC 100 [Suspect]
     Indication: HYPERTENSION
     Route: 048
     Dates: start: 20061121
  3. PREDNISONE TAB [Concomitant]
     Indication: ASTHMA
     Dosage: }20 YEARS
     Route: 048
  4. OLCADIL [Concomitant]
     Dosage: }1 YEAR

REACTIONS (5)
  - ASTHMA [None]
  - CONFUSIONAL STATE [None]
  - DEPRESSION [None]
  - DISTURBANCE IN ATTENTION [None]
  - MALAISE [None]
